FAERS Safety Report 7701041-9 (Version None)
Quarter: 2011Q3

REPORT INFORMATION
  Report Type: 
  Country: None (occurrence: None)
  Receive Date: 20110822
  Receipt Date: 20110815
  Transmission Date: 20111222
  Serious: Yes (Hospitalization)
  Sender: FDA-Public Use
  Company Number: US-TEVA-296595USA

PATIENT
  Sex: Female

DRUGS (1)
  1. COPAXONE [Suspect]
     Indication: MULTIPLE SCLEROSIS
     Route: 058

REACTIONS (5)
  - DRUG INEFFECTIVE [None]
  - FALL [None]
  - MUSCLE SPASTICITY [None]
  - HEAD INJURY [None]
  - INJECTION SITE INFECTION [None]
